FAERS Safety Report 5147786-9 (Version None)
Quarter: 2006Q4

REPORT INFORMATION
  Report Type: 
  Country: None (occurrence: None)
  Receive Date: 20061110
  Receipt Date: 20061006
  Transmission Date: 20070319
  Serious: Yes (Other)
  Sender: FDA-Public Use
  Company Number: PHEH2006US12696

PATIENT
  Sex: Male

DRUGS (1)
  1. BROMOCRIPTINE MESYLATE [Suspect]
     Indication: PITUITARY TUMOUR BENIGN
     Dosage: 10 MG, TID
     Route: 048

REACTIONS (5)
  - BLOOD PROLACTIN INCREASED [None]
  - CONSTIPATION [None]
  - FALL [None]
  - SPINAL FRACTURE [None]
  - SPINAL OPERATION [None]
